FAERS Safety Report 6247594-1 (Version None)
Quarter: 2009Q2

REPORT INFORMATION
  Report Type: 
  Country: None (occurrence: None)
  Receive Date: 20090626
  Receipt Date: 20090526
  Transmission Date: 20091009
  Serious: Yes (Death, Other)
  Sender: FDA-Public Use
  Company Number: CL-MERCK-0905CHL00001

PATIENT
  Age: 52 Year
  Sex: Male
  Weight: 96 kg

DRUGS (20)
  1. PRIMAXIN [Suspect]
     Indication: PNEUMONIA ASPIRATION
     Route: 042
     Dates: start: 20090402, end: 20090403
  2. CEFOTAXIME SODIUM [Concomitant]
     Route: 042
     Dates: start: 20090329, end: 20090401
  3. CLINDAMYCIN HYDROCHLORIDE [Concomitant]
     Route: 042
     Dates: start: 20090329, end: 20090404
  4. TERLIPRESSIN [Concomitant]
     Route: 042
     Dates: start: 20090329, end: 20090404
  5. PRILOSEC [Concomitant]
     Route: 042
     Dates: start: 20090329, end: 20090405
  6. PHYTONADIONE [Concomitant]
     Route: 042
     Dates: start: 20090329, end: 20090402
  7. ROCURONIUM BROMIDE [Concomitant]
     Route: 065
     Dates: start: 20090329, end: 20090329
  8. FENTANYL ORALET [Concomitant]
     Route: 065
     Dates: start: 20090329, end: 20090329
  9. LIDOCAINE [Concomitant]
     Route: 065
  10. DIPYRONE [Concomitant]
     Route: 041
     Dates: start: 20090329, end: 20090403
  11. LORAZEPAM [Concomitant]
     Route: 065
     Dates: start: 20090331, end: 20090331
  12. HALDOL [Concomitant]
     Route: 065
     Dates: start: 20090331, end: 20090331
  13. PROPOFOL [Concomitant]
     Route: 065
     Dates: start: 20090331, end: 20090331
  14. MERONEM [Concomitant]
     Route: 042
     Dates: start: 20090401, end: 20090401
  15. INSULIN [Concomitant]
     Route: 058
     Dates: start: 20090402, end: 20090403
  16. SOLU-CORTEF [Concomitant]
     Route: 042
     Dates: start: 20090402
  17. CHLORPHENIRAMINE MALEATE [Concomitant]
     Route: 065
     Dates: start: 20090404
  18. ACYCLOVIR [Concomitant]
     Route: 042
     Dates: start: 20090405, end: 20090405
  19. ALBUMIN HUMAN [Concomitant]
     Route: 042
     Dates: start: 20090405
  20. CYCLOPHOSPHAMIDE AND DOXORUBICIN AND FLUOROURACIL [Concomitant]
     Route: 047
     Dates: start: 20090404

REACTIONS (4)
  - MULTI-ORGAN FAILURE [None]
  - PEMPHIGOID [None]
  - RESPIRATORY FAILURE [None]
  - STEVENS-JOHNSON SYNDROME [None]
